FAERS Safety Report 8230549-5 (Version None)
Quarter: 2012Q1

REPORT INFORMATION
  Report Type: 
  Country: None (occurrence: None)
  Receive Date: 20120323
  Receipt Date: 20120313
  Transmission Date: 20120608
  Serious: Yes (Other)
  Sender: FDA-Public Use
  Company Number: CA-JNJFOC-20120306685

PATIENT
  Sex: Male

DRUGS (1)
  1. STELARA [Suspect]
     Indication: PSORIASIS
     Dosage: PATIENT HAS BEEN ON USTEKINUMAB FOR 2 YEARS

REACTIONS (1)
  - HAND-FOOT-AND-MOUTH DISEASE [None]
